FAERS Safety Report 8896398 (Version 2)
Quarter: 2012Q4

REPORT INFORMATION
  Report Type: 
  Country: US (occurrence: None)
  Receive Date: 20121031
  Receipt Date: 20121121
  Transmission Date: 20130627
  Serious: Yes (Death)
  Sender: FDA-Public Use
  Company Number: UTC-024463

PATIENT
  Age: 73 Year
  Sex: Female

DRUGS (2)
  1. TYVASO (6 MICROGRAM, AEROSOL FOR INHALATION) (TREPROSTINIL SODIUM) [Suspect]
     Indication: CHRONIC PULMONARY HEART DISEASE
     Dosage: (54 MCG, 4 in 1 D)
     Route: 055
  2. TYVASO (6 MICROGRAM, AEROSOL FOR INHALATION) (TREPROSTINIL SODIUM) [Suspect]
     Indication: CHRONIC PULMONARY HEART DISEASE
     Dosage: 216 mcg (54 mcg, 4 in 1 D), Inhalation
     Route: 055
     Dates: start: 20120228

REACTIONS (3)
  - Death [None]
  - Arrhythmia [None]
  - Scleroderma [None]
